FAERS Safety Report 14907675 (Version 1)
Quarter: 2018Q2

REPORT INFORMATION
  Report Type: Spontaneous
  Country: US (occurrence: US)
  Receive Date: 20180517
  Receipt Date: 20180517
  Transmission Date: 20180711
  Serious: No
  Sender: FDA-Public Use
  Company Number: US-VANDA PHARMACEUTICALS, INC-2017ILOUS001629

PATIENT
  Age: 45 Year
  Sex: Female

DRUGS (6)
  1. LORAZEPAM. [Concomitant]
     Active Substance: LORAZEPAM
     Indication: ANXIETY
     Dosage: 1-2 MG PRN DAILY
  2. ABILIFY [Suspect]
     Active Substance: ARIPIPRAZOLE
     Indication: PRODUCT USED FOR UNKNOWN INDICATION
     Dosage: 2.5 MG, UNK
  3. ZOLPIDEM [Concomitant]
     Active Substance: ZOLPIDEM\ZOLPIDEM TARTRATE
     Indication: PRODUCT USED FOR UNKNOWN INDICATION
     Dosage: 2.5-5 MG QHS
  4. FANAPT [Suspect]
     Active Substance: ILOPERIDONE
     Indication: BIPOLAR DISORDER
     Dosage: 6 MG, BID
     Route: 048
  5. FANAPT [Suspect]
     Active Substance: ILOPERIDONE
     Dosage: 3 MG, BID
     Route: 048
     Dates: end: 20170728
  6. LITHIUM CARBONATE. [Concomitant]
     Active Substance: LITHIUM CARBONATE
     Indication: PRODUCT USED FOR UNKNOWN INDICATION
     Dosage: 900 MG, QHS

REACTIONS (4)
  - Dysphagia [Recovering/Resolving]
  - Lymphadenopathy [Unknown]
  - Insomnia [Unknown]
  - Throat tightness [Recovering/Resolving]

NARRATIVE: CASE EVENT DATE: 201702
